FAERS Safety Report 8947311 (Version 2)
Quarter: 2013Q1

REPORT INFORMATION
  Report Type: Spontaneous
  Country: US (occurrence: US)
  Receive Date: 20121205
  Receipt Date: 20130111
  Transmission Date: 20140127
  Serious: No
  Sender: FDA-Public Use
  Company Number: US-B.I. PHARMACEUTICALS,INC./RIDGEFIELD-2012-BI-01703BP

PATIENT
  Sex: Male
  Weight: 102.06 kg

DRUGS (13)
  1. PRADAXA [Suspect]
     Indication: ATRIAL FIBRILLATION
     Dosage: 300 MG
     Route: 048
     Dates: start: 201107, end: 201209
  2. CALCIUM [Concomitant]
  3. CARDURA [Concomitant]
  4. CRESTOR [Concomitant]
  5. DICLOFENAC [Concomitant]
  6. GARLIC [Concomitant]
  7. LEVOTHYROXINE [Concomitant]
  8. MULTIVITAMIN [Concomitant]
  9. OMEPRAZOLE [Concomitant]
  10. PROSCAR [Concomitant]
  11. TOPROL [Concomitant]
  12. VITAMIN C [Concomitant]
  13. VITAMIN E [Concomitant]

REACTIONS (2)
  - Haemorrhoidal haemorrhage [Recovered/Resolved]
  - Atrial fibrillation [Recovered/Resolved]
